FAERS Safety Report 5026906-0 (Version None)
Quarter: 2006Q2

REPORT INFORMATION
  Report Type: 
  Country: None (occurrence: None)
  Receive Date: 20060609
  Receipt Date: 20060602
  Transmission Date: 20061013
  Serious: Yes (Life-Threatening, Hospitalization)
  Sender: FDA-Public Use
  Company Number: HQWYE820102JUN06

PATIENT
  Sex: Female

DRUGS (13)
  1. CORDARONE [Suspect]
     Indication: ATRIAL FIBRILLATION
     Dosage: INTRAVENOUS
     Route: 042
     Dates: start: 20060426, end: 20060426
  2. HUMALOG [Concomitant]
  3. PROPAFENONE HCL [Concomitant]
  4. PRESTARIUM (PERINDOPRIL) [Concomitant]
  5. LANTUS [Concomitant]
  6. LEVOTHYROXINE SODIUM [Concomitant]
  7. TENORMIN [Concomitant]
  8. OMEPRAZOLE [Concomitant]
  9. ZOCOR [Concomitant]
  10. GERATAM (PIRACETAM) [Concomitant]
  11. SERTRALINE [Concomitant]
  12. AMLODIPINE [Concomitant]
  13. ANOPYRIN (ACETYLSALICYLIC ACID) [Concomitant]

REACTIONS (6)
  - CIRCULATORY COLLAPSE [None]
  - FLUSHING [None]
  - GLOSSODYNIA [None]
  - PRURITUS [None]
  - TACHYCARDIA [None]
  - TONGUE OEDEMA [None]
